FAERS Safety Report 14333738 (Version 2)
Quarter: 2018Q1

REPORT INFORMATION
  Report Type: Spontaneous
  Country: US (occurrence: US)
  Receive Date: 20171228
  Receipt Date: 20180212
  Transmission Date: 20180509
  Serious: Yes (Other)
  Sender: FDA-Public Use
  Company Number: US-SUN PHARMACEUTICAL INDUSTRIES LTD-2017US-154939

PATIENT
  Age: 42 Year
  Sex: Female

DRUGS (5)
  1. CARFLIZOMIB 30 MG [Interacting]
     Active Substance: CARFILZOMIB
     Indication: NEUROPATHY PERIPHERAL
     Dosage: 20 MG/M2, UNK (3 DOSES)
     Route: 042
  2. ACETYLSALICYLIC ACID [Concomitant]
     Active Substance: ASPIRIN
     Indication: PROPHYLAXIS
     Dosage: UNK
     Route: 065
  3. LENALIDOMIDE [Interacting]
     Active Substance: LENALIDOMIDE
     Indication: NEUROPATHY PERIPHERAL
     Dosage: 25 MG, DAILY
     Route: 048
  4. DEXAMETHASONE. [Suspect]
     Active Substance: DEXAMETHASONE
     Indication: NEUROPATHY PERIPHERAL
     Dosage: 2 DOSES
     Route: 042
  5. CARFLIZOMIB [Interacting]
     Active Substance: CARFILZOMIB
     Indication: NEUROPATHY PERIPHERAL
     Dosage: 20 MG/M2, DAILY (3 DOSES)
     Route: 042

REACTIONS (4)
  - Ventricular tachycardia [Recovered/Resolved]
  - Myocardial fibrosis [Not Recovered/Not Resolved]
  - Drug interaction [Unknown]
  - Cardiotoxicity [Recovered/Resolved]
